FAERS Safety Report 10913898 (Version 2)
Quarter: 2017Q1

REPORT INFORMATION
  Report Type: Spontaneous
  Country: US (occurrence: US)
  Receive Date: 20150313
  Receipt Date: 20170227
  Transmission Date: 20170428
  Serious: Yes (Other)
  Sender: FDA-Public Use
  Company Number: US-ELI_LILLY_AND_COMPANY-US201503000504

PATIENT
  Sex: Female

DRUGS (3)
  1. CYMBALTA [Suspect]
     Active Substance: DULOXETINE HYDROCHLORIDE
     Indication: NEUROPATHY PERIPHERAL
     Dosage: 30 MG, QD
     Route: 065
     Dates: start: 20130128
  2. OXYCODONE HYDROCHLORIDE. [Concomitant]
     Active Substance: OXYCODONE HYDROCHLORIDE
     Indication: PAIN
     Dosage: 10 MG, PRN
     Route: 048
     Dates: start: 20130418
  3. CYMBALTA [Suspect]
     Active Substance: DULOXETINE HYDROCHLORIDE
     Indication: PAIN IN EXTREMITY
     Dosage: 60 MG, QD
     Route: 065
     Dates: start: 201303, end: 20130916

REACTIONS (16)
  - Sensory disturbance [Unknown]
  - Paraesthesia [Unknown]
  - Vomiting [Unknown]
  - Agitation [Unknown]
  - Nausea [Unknown]
  - Vertigo [Unknown]
  - Anxiety [Unknown]
  - Off label use [Unknown]
  - Dysphoria [Unknown]
  - Affect lability [Unknown]
  - Panic attack [Unknown]
  - Mood swings [Unknown]
  - Crying [Unknown]
  - Dizziness [Unknown]
  - Drug withdrawal syndrome [Unknown]
  - Irritability [Unknown]
